FAERS Safety Report 12121993 (Version 1)
Quarter: 2016Q1

REPORT INFORMATION
  Report Type: Spontaneous
  Country: US (occurrence: US)
  Receive Date: 20160226
  Receipt Date: 20160226
  Transmission Date: 20160526
  Serious: No
  Sender: FDA-Public Use
  Company Number: US-ALLERGAN-1510747US

PATIENT
  Sex: Female
  Weight: 68.27 kg

DRUGS (1)
  1. REFRESH OPTIVE [Suspect]
     Active Substance: CARBOXYMETHYLCELLULOSE SODIUM\GLYCERIN
     Indication: DRY EYE
     Dosage: 1-2 GTTS EACH EYE, EVERY MORNING AND EVENING
     Route: 047
     Dates: start: 201412

REACTIONS (1)
  - Therapeutic response decreased [Unknown]
